FAERS Safety Report 12439910 (Version 1)
Quarter: 2016Q2

REPORT INFORMATION
  Report Type: Spontaneous
  Country: US (occurrence: US)
  Receive Date: 20160606
  Receipt Date: 20160606
  Transmission Date: 20160815
  Serious: Yes (Hospitalization, Other)
  Sender: FDA-Public Use
  Company Number: US-IPCA LABORATORIES LIMITED-IPC201605-000475

PATIENT
  Age: 48 Year
  Sex: Male

DRUGS (3)
  1. METFORMIN HYDROCHLORIDE. [Suspect]
     Active Substance: METFORMIN HYDROCHLORIDE
  2. TRAZODONE [Suspect]
     Active Substance: TRAZODONE HYDROCHLORIDE
  3. CLONAZEPAM. [Suspect]
     Active Substance: CLONAZEPAM

REACTIONS (11)
  - Ventricular arrhythmia [Unknown]
  - Bradycardia [Unknown]
  - Acute kidney injury [Unknown]
  - Hypotension [Unknown]
  - Coma [Unknown]
  - Haemolysis [Unknown]
  - Toxicity to various agents [Unknown]
  - Hypoglycaemia [Unknown]
  - Acute respiratory distress syndrome [Unknown]
  - Metabolic acidosis [Unknown]
  - Intentional overdose [Unknown]
